FAERS Safety Report 17074333 (Version 1)
Quarter: 2019Q4

REPORT INFORMATION
  Report Type: Spontaneous
  Country: US (occurrence: US)
  Receive Date: 20191028
  Receipt Date: 20191028
  Transmission Date: 20200122
  Serious: Yes (Hospitalization)
  Sender: FDA-Public Use
  Company Number: None

PATIENT
  Age: 49 Year
  Sex: Male

DRUGS (6)
  1. TYLENOL [Concomitant]
     Active Substance: ACETAMINOPHEN
  2. LOSARTAN POT [Concomitant]
     Active Substance: LOSARTAN POTASSIUM
  3. NADOLOL. [Concomitant]
     Active Substance: NADOLOL
  4. LEUKINE [Suspect]
     Active Substance: SARGRAMOSTIM
     Indication: METASTASES TO BONE
     Route: 058
     Dates: start: 20190803
  5. LOVENOX [Concomitant]
     Active Substance: ENOXAPARIN SODIUM
  6. BACLOFEN. [Concomitant]
     Active Substance: BACLOFEN

REACTIONS (1)
  - Hospitalisation [None]
